FAERS Safety Report 14387270 (Version 2)
Quarter: 2018Q1

REPORT INFORMATION
  Report Type: Report from Study
  Country: US (occurrence: US)
  Receive Date: 20180115
  Receipt Date: 20180329
  Transmission Date: 20180509
  Serious: Yes (Hospitalization)
  Sender: FDA-Public Use
  Company Number: US-VIFOR (INTERNATIONAL) INC.-VIT-2018-00281

PATIENT
  Age: 70 Year
  Sex: Female
  Weight: 88.08 kg

DRUGS (17)
  1. ONDANSETRON HYDROCHLORIDE. [Concomitant]
     Active Substance: ONDANSETRON HYDROCHLORIDE
     Dates: start: 20170816
  2. VELTASSA [Suspect]
     Active Substance: PATIROMER
  3. RANITIDINE. [Concomitant]
     Active Substance: RANITIDINE
     Dates: start: 20170921
  4. LEVEMIR [Concomitant]
     Active Substance: INSULIN DETEMIR
     Dates: start: 20170518
  5. DIGOXIN. [Concomitant]
     Active Substance: DIGOXIN
     Dates: start: 20170518
  6. WARFARIN [Concomitant]
     Active Substance: WARFARIN
  7. XANAX [Concomitant]
     Active Substance: ALPRAZOLAM
     Dates: start: 20170518
  8. MAGNESIUM [Concomitant]
     Active Substance: MAGNESIUM
     Dates: start: 20170518
  9. FLONASE ALLERGY RELIEF [Concomitant]
     Active Substance: FLUTICASONE PROPIONATE
     Dates: start: 20170518
  10. CARVEDILOL. [Concomitant]
     Active Substance: CARVEDILOL
     Dates: start: 20170518
  11. COLECALCIFEROL [Concomitant]
     Active Substance: CHOLECALCIFEROL
     Dates: start: 20170518
  12. TOCOPHEROL~~FISH OIL [Concomitant]
     Dates: start: 20170518
  13. DEXAMETHASONE. [Concomitant]
     Active Substance: DEXAMETHASONE
     Dates: start: 20170518
  14. ZOFRAN [Concomitant]
     Active Substance: ONDANSETRON HYDROCHLORIDE
     Dates: start: 20170518
  15. VELTASSA [Suspect]
     Active Substance: PATIROMER
     Indication: HYPERKALAEMIA
     Route: 048
     Dates: start: 20170523
  16. TORASEMIDE [Concomitant]
     Active Substance: TORSEMIDE
     Dates: start: 20170921
  17. NOVOLOG [Concomitant]
     Active Substance: INSULIN ASPART
     Dates: start: 20170518

REACTIONS (5)
  - Gastrointestinal infection [Recovered/Resolved]
  - Cellulitis [Unknown]
  - Condition aggravated [Unknown]
  - Product availability issue [Unknown]
  - Gastric haemorrhage [Unknown]

NARRATIVE: CASE EVENT DATE: 201801
